FAERS Safety Report 16199312 (Version 1)
Quarter: 2019Q2

REPORT INFORMATION
  Report Type: Spontaneous
  Country: SE (occurrence: SE)
  Receive Date: 20190415
  Receipt Date: 20190415
  Transmission Date: 20190711
  Serious: Yes (Disabling)
  Sender: FDA-Public Use
  Company Number: SE-009507513-1904SWE004205

PATIENT
  Age: 50 Year
  Sex: Female
  Weight: 53 kg

DRUGS (2)
  1. ATARAX [Concomitant]
     Active Substance: HYDROXYZINE HYDROCHLORIDE
     Dosage: UNK UNK, PRN
  2. ZEPATIER [Suspect]
     Active Substance: ELBASVIR\GRAZOPREVIR
     Indication: HEPATITIS C
     Dates: start: 20190122

REACTIONS (7)
  - Rash [Not Recovered/Not Resolved]
  - Migraine [Not Recovered/Not Resolved]
  - Blister [Not Recovered/Not Resolved]
  - Visual impairment [Not Recovered/Not Resolved]
  - Immunodeficiency [Not Recovered/Not Resolved]
  - Swelling face [Not Recovered/Not Resolved]
  - Pain [Not Recovered/Not Resolved]

NARRATIVE: CASE EVENT DATE: 2019
